FAERS Safety Report 10068835 (Version 2)
Quarter: 2014Q2

REPORT INFORMATION
  Report Type: Report from Study
  Country: CA (occurrence: CA)
  Receive Date: 20140409
  Receipt Date: 20140409
  Transmission Date: 20141212
  Serious: Yes (Other)
  Sender: FDA-Public Use
  Company Number: PHHY2013CA018045

PATIENT
  Sex: Male

DRUGS (3)
  1. GLEEVEC [Suspect]
     Indication: CHRONIC MYELOID LEUKAEMIA
     Dosage: UNK UKN, UNK
     Route: 048
  2. TASIGNA [Suspect]
     Dosage: UNK UKN, UNK
  3. SPRYCEL [Suspect]
     Dosage: UNK UKN, UNK

REACTIONS (3)
  - Diffuse large B-cell lymphoma [Unknown]
  - Second primary malignancy [Unknown]
  - Therapeutic response decreased [Unknown]
